FAERS Safety Report 7917959-8 (Version None)
Quarter: 2011Q4

REPORT INFORMATION
  Report Type: 
  Country: None (occurrence: None)
  Receive Date: 20111116
  Receipt Date: 20111112
  Transmission Date: 20120403
  Serious: Yes (Other)
  Sender: FDA-Public Use
  Company Number: PHHY2011CN88700

PATIENT
  Sex: Male
  Weight: 70 kg

DRUGS (4)
  1. SEBIVO [Interacting]
     Indication: HEPATIC CIRRHOSIS
  2. SEBIVO [Suspect]
     Indication: HEPATITIS B
     Dosage: 600 MG, QD
     Route: 048
     Dates: start: 20110621, end: 20110916
  3. LIPITOR [Interacting]
     Indication: MYOCARDIAL INFARCTION
  4. LIPITOR [Interacting]
     Indication: CORONARY ARTERY DISEASE
     Dosage: 20 MG, QD
     Dates: start: 20110902

REACTIONS (8)
  - FATIGUE [None]
  - HYPERTHERMIA [None]
  - DRUG INTERACTION [None]
  - BLOOD CREATINE PHOSPHOKINASE INCREASED [None]
  - GAIT DISTURBANCE [None]
  - MUSCULAR WEAKNESS [None]
  - ASTHENIA [None]
  - ARTERIAL THROMBOSIS [None]
